FAERS Safety Report 21459690 (Version 1)
Quarter: 2022Q4

REPORT INFORMATION
  Report Type: Spontaneous
  Country: CN (occurrence: CN)
  Receive Date: 20221014
  Receipt Date: 20221014
  Transmission Date: 20230113
  Serious: Yes (Life-Threatening, Hospitalization)
  Sender: FDA-Public Use
  Company Number: CN-BAYER-2022A141776

PATIENT
  Age: 51 Year
  Sex: Male
  Weight: 58 kg

DRUGS (6)
  1. XARELTO [Suspect]
     Active Substance: RIVAROXABAN
     Indication: Thrombosis prophylaxis
     Dosage: 10 MG, QD
     Route: 048
     Dates: start: 20220910, end: 20220922
  2. SODIUM ESCINATE [Suspect]
     Active Substance: SODIUM ESCINATE
     Indication: Oedema
     Dosage: 60 MG, BID
     Route: 048
     Dates: start: 20220910, end: 20220922
  3. SODIUM ESCINATE [Suspect]
     Active Substance: SODIUM ESCINATE
     Indication: Diuretic therapy
  4. CODEINE PHOSPHATE\IBUPROFEN [Suspect]
     Active Substance: CODEINE PHOSPHATE\IBUPROFEN
     Indication: Analgesic therapy
     Dosage: 0.426 G, BID
     Route: 048
     Dates: start: 20220910, end: 20220922
  5. VITAMIN D2 [Suspect]
     Active Substance: ERGOCALCIFEROL
     Indication: Vitamin supplementation
     Dosage: 0.25 MG, QD
     Route: 048
     Dates: start: 20220910, end: 20220922
  6. CEFACLOR [Concomitant]
     Active Substance: CEFACLOR
     Indication: Infection
     Dosage: 0.25 G, BID
     Route: 048
     Dates: start: 20220910, end: 20220914

REACTIONS (6)
  - Upper gastrointestinal haemorrhage [Recovering/Resolving]
  - Shock haemorrhagic [Recovering/Resolving]
  - Dizziness [Recovering/Resolving]
  - Asthenia [Recovering/Resolving]
  - Haematemesis [Recovering/Resolving]
  - Off label use [Unknown]

NARRATIVE: CASE EVENT DATE: 20220910
